FAERS Safety Report 6807178-0 (Version None)
Quarter: 2010Q2

REPORT INFORMATION
  Report Type: 
  Country: None (occurrence: None)
  Receive Date: 20100628
  Receipt Date: 20100628
  Transmission Date: 20101027
  Serious: Yes (Life-Threatening, Hospitalization)
  Sender: FDA-Public Use
  Company Number: None

PATIENT
  Age: 9 Year
  Sex: Female
  Weight: 22.6799 kg

DRUGS (2)
  1. RISPERIDONE [Suspect]
     Indication: ATTENTION DEFICIT/HYPERACTIVITY DISORDER
     Dosage: TAKE 1 TABLET BY MOUTH TWICE DAILY PO
     Route: 048
     Dates: start: 20100619, end: 20100619
  2. RISPERIDONE [Suspect]
     Indication: COGNITIVE DISORDER
     Dosage: TAKE 1 TABLET BY MOUTH TWICE DAILY PO
     Route: 048
     Dates: start: 20100619, end: 20100619

REACTIONS (2)
  - DROOLING [None]
  - DRUG HYPERSENSITIVITY [None]
